FAERS Safety Report 5670248-7 (Version None)
Quarter: 2008Q1

REPORT INFORMATION
  Report Type: 
  Country: None (occurrence: None)
  Receive Date: 20080318
  Receipt Date: 20080211
  Transmission Date: 20080703
  Serious: No
  Sender: FDA-Public Use
  Company Number: US-BAYER-200715734NA

PATIENT

DRUGS (7)
  1. LEUKINE [Suspect]
     Indication: NEUTROPENIA
     Route: 058
     Dates: start: 20071123, end: 20071127
  2. TAXOTERE [Concomitant]
     Indication: LYMPHOMA
  3. RITUXAN [Concomitant]
     Indication: LYMPHOMA
  4. CYCLOPHOSPHAMIDE [Concomitant]
     Indication: LYMPHOMA
  5. DOXORUBICIN HCL [Concomitant]
     Indication: LYMPHOMA
  6. VINCRISTINE [Concomitant]
     Indication: LYMPHOMA
  7. PREDNISOLONE [Concomitant]
     Indication: LYMPHOMA

REACTIONS (8)
  - ARTHRALGIA [None]
  - BACK PAIN [None]
  - CHEST PAIN [None]
  - DIARRHOEA [None]
  - DIZZINESS [None]
  - DYSPNOEA [None]
  - PALPITATIONS [None]
  - URTICARIA [None]
